FAERS Safety Report 24302662 (Version 2)
Quarter: 2024Q3

REPORT INFORMATION
  Report Type: Spontaneous
  Country: CN (occurrence: None)
  Receive Date: 20240910
  Receipt Date: 20240917
  Transmission Date: 20241017
  Serious: Yes (Hospitalization)
  Sender: ASTRAZENECA
  Company Number: 2024A139221

PATIENT
  Sex: Female

DRUGS (2)
  1. FASLODEX [Suspect]
     Active Substance: FULVESTRANT
     Indication: Breast disorder female
     Route: 030
  2. ABEMACICLIB [Concomitant]
     Active Substance: ABEMACICLIB

REACTIONS (7)
  - Night sweats [Recovered/Resolved]
  - Dizziness [Recovered/Resolved]
  - Asthenia [Recovered/Resolved]
  - Cardiac discomfort [Unknown]
  - Retching [Unknown]
  - Vertigo [Unknown]
  - Intentional product use issue [Unknown]
